FAERS Safety Report 9196592 (Version 2)
Quarter: 2013Q2

REPORT INFORMATION
  Report Type: Spontaneous
  Country: GB (occurrence: GB)
  Receive Date: 20130328
  Receipt Date: 20130412
  Transmission Date: 20140414
  Serious: Yes (Hospitalization)
  Sender: FDA-Public Use
  Company Number: GB-NAPPMUNDI-GBR-2013-0013519

PATIENT
  Sex: Female

DRUGS (7)
  1. OXYNORM CONCENTRATE ORAL SOLUTION 5 MG/ 5 ML [Suspect]
     Indication: OROPHARYNGEAL PAIN
     Dosage: UNK
     Route: 048
     Dates: start: 20130303
  2. GABAPENTIN [Concomitant]
  3. THYROXINE [Concomitant]
  4. OXYBUTYNIN [Concomitant]
  5. LANSOPRAZOL [Concomitant]
  6. CITALOPRAM [Concomitant]
  7. ALLOPURINOL [Concomitant]

REACTIONS (4)
  - Accidental overdose [Not Recovered/Not Resolved]
  - Brain injury [Unknown]
  - Hepatic function abnormal [Unknown]
  - Renal impairment [Unknown]
